FAERS Safety Report 8138774 (Version 2)
Quarter: 2012Q4

REPORT INFORMATION
  Report Type: Report from Study
  Country: US (occurrence: US)
  Receive Date: 20110915
  Receipt Date: 20120910
  Transmission Date: 20130627
  Serious: Yes (Life-Threatening, Hospitalization)
  Sender: FDA-Public Use
  Company Number: US-ROCHE-790068

PATIENT
  Age: 65 Year
  Sex: Female
  Weight: 81.1 kg

DRUGS (5)
  1. NEULASTA [Suspect]
     Indication: BREAST CANCER
     Dosage: PEGFILGRASTIM:  6MG SQ ON DAY 2
DATE OF LAST DOSE PRIOR TO SAE: 30 APRIL 2011
     Route: 058
  2. DOXORUBICIN [Suspect]
     Indication: BREAST CANCER
     Dosage: 60MG/M2 IVP ON DAY 1. CYCLE = 14 DAYS  (CYCLES 1-4) 
DATE OF LAST DOSE PRIOR TO SAE: 29 APRIL 2011
     Route: 042
  3. CYCLOPHOSPHAMIDE [Suspect]
     Indication: BREAST CANCER
     Dosage: OVER 20-30 MIN ON DAY 1 CYCLE = 14 DAYS  (CYCLES 1-4)
DATE OF LAST DOSE PRIOR TO SAE: 29 APRIL 2011
     Route: 042
  4. PACLITAXEL [Suspect]
     Indication: BREAST CANCER
     Dosage: OVER 1 HR ON DAYS 1, 8 AND 15
CYCLE = 21 DAYS  (CYCLES 5-8)
DATE OF LAST DOSE: 27 JUNE 2011
     Route: 042
  5. AVASTIN [Suspect]
     Indication: BREAST CANCER
     Dosage: IV OVER 30- 90 MIN ON DAY 1
CYCLE = 14 DAYS  (CYCLES 1-4) LAST DOSE: 10 JUNE 2011
     Route: 042

REACTIONS (7)
  - Cardiac arrest [Unknown]
  - Left ventricular dysfunction [Recovering/Resolving]
  - Sinus tachycardia [Recovered/Resolved]
  - Sinus bradycardia [Recovered/Resolved]
  - Arrhythmia supraventricular [Unknown]
  - Ventricular arrhythmia [Not Recovered/Not Resolved]
  - Ventricular tachycardia [Unknown]
